FAERS Safety Report 9918562 (Version 1)
Quarter: 2014Q1

REPORT INFORMATION
  Report Type: Spontaneous
  Country: US (occurrence: US)
  Receive Date: 20140224
  Receipt Date: 20140224
  Transmission Date: 20141002
  Serious: No
  Sender: FDA-Public Use
  Company Number: US-BIOGENIDEC-2014BI015294

PATIENT
  Sex: Male

DRUGS (9)
  1. TECFIDERA [Suspect]
     Indication: MULTIPLE SCLEROSIS
     Route: 048
     Dates: start: 201306
  2. GABAPENTIN [Concomitant]
  3. AMPYRA [Concomitant]
  4. LIDOCAINE [Concomitant]
  5. MOTRIN [Concomitant]
  6. LEXAPRO [Concomitant]
  7. NAPROSYN [Concomitant]
  8. BACLOFEN [Concomitant]
  9. VITAMIN D [Concomitant]

REACTIONS (2)
  - Fatigue [Not Recovered/Not Resolved]
  - Back pain [Not Recovered/Not Resolved]
